FAERS Safety Report 11094847 (Version 1)
Quarter: 2015Q2

REPORT INFORMATION
  Report Type: Spontaneous
  Country: FR (occurrence: FR)
  Receive Date: 20150506
  Receipt Date: 20150506
  Transmission Date: 20150821
  Serious: Yes (Hospitalization, Other)
  Sender: FDA-Public Use
  Company Number: FR-ASTRAZENECA-2015SE41112

PATIENT
  Age: 764 Month
  Sex: Male

DRUGS (5)
  1. VENLAFAXINE [Concomitant]
     Active Substance: VENLAFAXINE HYDROCHLORIDE
     Dosage: FORMULATION SR, 75 MG UNKNOWN
  2. XEROQUEL [Suspect]
     Active Substance: QUETIAPINE FUMARATE
     Indication: MAJOR DEPRESSION
     Route: 048
     Dates: start: 201503
  3. XEROQUEL [Suspect]
     Active Substance: QUETIAPINE FUMARATE
     Indication: MAJOR DEPRESSION
     Dosage: DOSE PROGRESSIVELY INCREASED
     Route: 048
     Dates: start: 201503, end: 201503
  4. LYRICA [Concomitant]
     Active Substance: PREGABALIN
  5. SERESTA [Concomitant]
     Active Substance: OXAZEPAM

REACTIONS (3)
  - Mental disorder [Unknown]
  - Enterocolitis [Not Recovered/Not Resolved]
  - Abdominal pain [Not Recovered/Not Resolved]

NARRATIVE: CASE EVENT DATE: 201504
